FAERS Safety Report 7764259-5 (Version None)
Quarter: 2011Q3

REPORT INFORMATION
  Report Type: 
  Country: None (occurrence: None)
  Receive Date: 20110920
  Receipt Date: 20110920
  Transmission Date: 20111222
  Serious: No
  Sender: FDA-Public Use
  Company Number: None

PATIENT
  Age: 2 Year
  Sex: Male

DRUGS (1)
  1. ABILIFY [Suspect]

REACTIONS (2)
  - ACCIDENTAL DRUG INTAKE BY CHILD [None]
  - FAILURE OF CHILD RESISTANT MECHANISM FOR PHARMACEUTICAL PRODUCT [None]
